FAERS Safety Report 9649080 (Version 2)
Quarter: 2013Q4

REPORT INFORMATION
  Report Type: Spontaneous
  Country: GB (occurrence: GB)
  Receive Date: 20131028
  Receipt Date: 20131028
  Transmission Date: 20140711
  Serious: Yes (Other)
  Sender: FDA-Public Use
  Company Number: CHPA2013GB011427

PATIENT
  Age: 3 Year
  Sex: Female

DRUGS (1)
  1. SCOPODERM TTS [Suspect]
     Indication: INCREASED BRONCHIAL SECRETION
     Dosage: 1.5 MG, UNK
     Dates: start: 20130711, end: 20130807

REACTIONS (2)
  - Convulsion [Unknown]
  - Prescribed overdose [Unknown]
